FAERS Safety Report 9312509 (Version 2)
Quarter: 2014Q1

REPORT INFORMATION
  Report Type: Report from Study
  Country: US (occurrence: US)
  Receive Date: 20130528
  Receipt Date: 20140313
  Transmission Date: 20141002
  Serious: Yes (Hospitalization)
  Sender: FDA-Public Use
  Company Number: US-TEVA-400636USA

PATIENT
  Age: 67 Year
  Sex: Female

DRUGS (2)
  1. LABETALOL [Suspect]
     Indication: HYPERTENSION
     Dosage: 2 X 200 MG IN THE AM
     Dates: end: 201302
  2. COPAXONE [Suspect]
     Indication: MULTIPLE SCLEROSIS
     Dosage: 20 MILLIGRAM DAILY;
     Route: 058
     Dates: start: 20110916

REACTIONS (10)
  - Fall [Recovered/Resolved]
  - Head injury [Recovered/Resolved]
  - Mobility decreased [Recovered/Resolved]
  - Syncope [Recovered/Resolved]
  - Hypotension [Recovered/Resolved]
  - Dizziness [Recovered/Resolved]
  - Feeling hot [Recovered/Resolved]
  - Cold sweat [Recovered/Resolved]
  - Amnesia [Recovered/Resolved]
  - Loss of consciousness [Recovered/Resolved]
